FAERS Safety Report 6464361-4 (Version None)
Quarter: 2009Q4

REPORT INFORMATION
  Report Type: 
  Country: None (occurrence: None)
  Receive Date: 20091201
  Receipt Date: 20091117
  Transmission Date: 20100525
  Serious: Yes (Other)
  Sender: FDA-Public Use
  Company Number: JP-EISAI INC.-E3810-03286-SPO-JP

PATIENT
  Sex: Female
  Weight: 65 kg

DRUGS (9)
  1. PARIET (RABEPRAZOLE) [Suspect]
     Indication: GASTRIC ULCER
     Route: 048
     Dates: start: 20091016, end: 20091019
  2. PARIET (RABEPRAZOLE) [Suspect]
     Route: 048
     Dates: start: 20091014, end: 20091014
  3. TANATRIL [Concomitant]
     Indication: HYPERTENSION
     Route: 048
     Dates: start: 19950101
  4. CALSLOT [Concomitant]
     Indication: HYPERTENSION
     Route: 048
     Dates: start: 19950101
  5. LOXONIN ADHESIVE TAPE [Concomitant]
     Dates: end: 20091020
  6. GASLON [Concomitant]
     Indication: GASTRIC ULCER
     Route: 048
     Dates: end: 20091022
  7. KLARICID [Concomitant]
     Route: 048
     Dates: end: 20091020
  8. PL (NON PYRINE COLD MEDICINE) [Concomitant]
     Route: 048
     Dates: end: 20091020
  9. MUCOSTA [Concomitant]
     Route: 048
     Dates: end: 20091020

REACTIONS (3)
  - HAEMOLYTIC ANAEMIA [None]
  - LIVER DISORDER [None]
  - RENAL IMPAIRMENT [None]
